FAERS Safety Report 15931992 (Version 3)
Quarter: 2019Q3

REPORT INFORMATION
  Report Type: Spontaneous
  Country: US (occurrence: US)
  Receive Date: 20190207
  Receipt Date: 20190701
  Transmission Date: 20191004
  Serious: Yes (Disabling, Other)
  Sender: FDA-Public Use
  Company Number: US-ASTRAZENECA-2018SF27068

PATIENT
  Age: 44 Year
  Sex: Female
  Weight: 88.5 kg

DRUGS (65)
  1. PRILOSEC [Suspect]
     Active Substance: OMEPRAZOLE MAGNESIUM
     Indication: GASTROOESOPHAGEAL REFLUX DISEASE
     Route: 048
     Dates: start: 20010921, end: 20020529
  2. PRILOSEC OTC [Suspect]
     Active Substance: OMEPRAZOLE MAGNESIUM
     Indication: GASTROOESOPHAGEAL REFLUX DISEASE
     Route: 048
     Dates: start: 20080409, end: 20080805
  3. LISINOPRIL. [Concomitant]
     Active Substance: LISINOPRIL
  4. ERGOCALCIFEROL. [Concomitant]
     Active Substance: ERGOCALCIFEROL
  5. RANITIDINE. [Concomitant]
     Active Substance: RANITIDINE
  6. NEXIUM [Suspect]
     Active Substance: ESOMEPRAZOLE MAGNESIUM
     Indication: GASTROOESOPHAGEAL REFLUX DISEASE
     Route: 048
     Dates: start: 20120115
  7. NEXIUM [Suspect]
     Active Substance: ESOMEPRAZOLE MAGNESIUM
     Indication: GASTROOESOPHAGEAL REFLUX DISEASE
     Dosage: GENERIC
     Route: 065
  8. PRILOSEC [Suspect]
     Active Substance: OMEPRAZOLE MAGNESIUM
     Indication: GASTROOESOPHAGEAL REFLUX DISEASE
     Dosage: GENRIC
     Route: 065
     Dates: start: 2009, end: 2010
  9. PROTONIX [Suspect]
     Active Substance: PANTOPRAZOLE SODIUM
     Dosage: GEMERIC
     Route: 065
  10. IBUPROFEN. [Concomitant]
     Active Substance: IBUPROFEN
     Route: 065
     Dates: start: 20010310, end: 20020310
  11. TETRACYCLINE [Concomitant]
     Active Substance: TETRACYCLINE
     Route: 065
     Dates: start: 20020811, end: 20020811
  12. PROVENTIL [Concomitant]
     Active Substance: ALBUTEROL
  13. CARDURA [Concomitant]
     Active Substance: DOXAZOSIN MESYLATE
  14. LANTUS SOLOSTAR [Concomitant]
     Active Substance: INSULIN GLARGINE
  15. FLONASE [Concomitant]
     Active Substance: FLUTICASONE PROPIONATE
  16. APRESOLINE HYDROCHLORIDE [Concomitant]
     Active Substance: HYDRALAZINE HYDROCHLORIDE
  17. SPIRONOLACTONE. [Concomitant]
     Active Substance: SPIRONOLACTONE
  18. HYDROCODONE [Concomitant]
     Active Substance: HYDROCODONE
  19. NEXIUM [Suspect]
     Active Substance: ESOMEPRAZOLE MAGNESIUM
     Indication: GASTROOESOPHAGEAL REFLUX DISEASE
     Route: 048
     Dates: start: 2000
  20. VICTOZA [Concomitant]
     Active Substance: LIRAGLUTIDE
  21. ATORVASTATIN [Concomitant]
     Active Substance: ATORVASTATIN
  22. VENTOLIN HFA [Concomitant]
     Active Substance: ALBUTEROL SULFATE
  23. FERGON [Concomitant]
     Active Substance: FERROUS GLUCONATE
  24. EFFIENT [Concomitant]
     Active Substance: PRASUGREL HYDROCHLORIDE
  25. IBUPROFEN. [Concomitant]
     Active Substance: IBUPROFEN
  26. BENICAR [Concomitant]
     Active Substance: OLMESARTAN MEDOXOMIL
  27. AMLODIPINE [Concomitant]
     Active Substance: AMLODIPINE BESYLATE
  28. NEXIUM [Suspect]
     Active Substance: ESOMEPRAZOLE MAGNESIUM
     Indication: GASTROOESOPHAGEAL REFLUX DISEASE
     Dosage: GENERIC
     Route: 065
     Dates: start: 2015
  29. PRILOSEC [Suspect]
     Active Substance: OMEPRAZOLE MAGNESIUM
     Indication: GASTROOESOPHAGEAL REFLUX DISEASE
     Route: 048
     Dates: start: 2000
  30. PRILOSEC [Suspect]
     Active Substance: OMEPRAZOLE MAGNESIUM
     Indication: GASTROOESOPHAGEAL REFLUX DISEASE
     Dosage: GENRIC
     Route: 065
  31. PROTONIX [Suspect]
     Active Substance: PANTOPRAZOLE SODIUM
     Route: 065
  32. NORCO [Concomitant]
     Active Substance: ACETAMINOPHEN\HYDROCODONE BITARTRATE
  33. HYDRALAZINE [Concomitant]
     Active Substance: HYDRALAZINE HYDROCHLORIDE
  34. PRILOSEC [Suspect]
     Active Substance: OMEPRAZOLE MAGNESIUM
     Indication: GASTROOESOPHAGEAL REFLUX DISEASE
     Dosage: GENRIC
     Route: 065
     Dates: start: 2016, end: 2019
  35. PERCOCET [Concomitant]
     Active Substance: ACETAMINOPHEN\OXYCODONE HYDROCHLORIDE
     Dosage: 7.5 MG-325 MG PER TABLET
     Route: 065
     Dates: start: 20180306, end: 20180626
  36. RANEXA [Concomitant]
     Active Substance: RANOLAZINE
     Route: 065
     Dates: start: 20180207, end: 20180615
  37. LANTUS [Concomitant]
     Active Substance: INSULIN GLARGINE
  38. CATAPRES [Concomitant]
     Active Substance: CLONIDINE HYDROCHLORIDE
  39. ATORVASTATIN [Concomitant]
     Active Substance: ATORVASTATIN
  40. SIMVASTATIN. [Concomitant]
     Active Substance: SIMVASTATIN
  41. NEXIUM [Suspect]
     Active Substance: ESOMEPRAZOLE MAGNESIUM
     Indication: GASTROOESOPHAGEAL REFLUX DISEASE
     Route: 048
     Dates: start: 2011, end: 2015
  42. PRILOSEC [Suspect]
     Active Substance: OMEPRAZOLE MAGNESIUM
     Indication: GASTROOESOPHAGEAL REFLUX DISEASE
     Route: 048
     Dates: start: 2001, end: 2002
  43. PRILOSEC OTC [Suspect]
     Active Substance: OMEPRAZOLE MAGNESIUM
     Indication: GASTROOESOPHAGEAL REFLUX DISEASE
     Route: 048
     Dates: start: 2000
  44. TRIAM/HCTZ [Concomitant]
     Active Substance: HYDROCHLOROTHIAZIDE\TRIAMTERENE
     Dosage: 37.5/25
     Route: 065
     Dates: start: 20010310, end: 20020310
  45. OXYCODONE-ACETAMINOPHEN [Concomitant]
     Active Substance: ACETAMINOPHEN\OXYCODONE HYDROCHLORIDE
  46. DELTASONE [Concomitant]
     Active Substance: PREDNISONE
  47. NAPROXEN. [Concomitant]
     Active Substance: NAPROXEN
  48. ASPIRIN. [Concomitant]
     Active Substance: ASPIRIN
  49. NEXIUM [Suspect]
     Active Substance: ESOMEPRAZOLE MAGNESIUM
     Indication: GASTROOESOPHAGEAL REFLUX DISEASE
     Route: 048
     Dates: start: 2001, end: 2004
  50. PRILOSEC OTC [Suspect]
     Active Substance: OMEPRAZOLE MAGNESIUM
     Indication: GASTROOESOPHAGEAL REFLUX DISEASE
     Route: 048
     Dates: start: 2008, end: 2009
  51. LABETALOL HYDROCHLORIDE. [Concomitant]
     Active Substance: LABETALOL HYDROCHLORIDE
     Route: 065
     Dates: start: 20080318, end: 20080807
  52. LIPITOR [Concomitant]
     Active Substance: ATORVASTATIN CALCIUM
  53. COREG [Concomitant]
     Active Substance: CARVEDILOL
  54. LASIX [Concomitant]
     Active Substance: FUROSEMIDE
  55. LISINOPRIL. [Concomitant]
     Active Substance: LISINOPRIL
  56. TRAMADOL. [Concomitant]
     Active Substance: TRAMADOL
  57. VIOXX [Concomitant]
     Active Substance: ROFECOXIB
     Route: 065
     Dates: start: 20020921, end: 20021025
  58. FUROSEMIDE. [Concomitant]
     Active Substance: FUROSEMIDE
     Route: 065
     Dates: start: 20080619, end: 20080804
  59. CLONIDIN [Concomitant]
     Active Substance: CLONIDINE
  60. NOVOLOG [Concomitant]
     Active Substance: INSULIN ASPART
  61. CRESTOR [Concomitant]
     Active Substance: ROSUVASTATIN CALCIUM
  62. ZESTRIL [Concomitant]
     Active Substance: LISINOPRIL
  63. FUROSEMIDE. [Concomitant]
     Active Substance: FUROSEMIDE
  64. AMOXICILLIN. [Concomitant]
     Active Substance: AMOXICILLIN
  65. TUMS [Concomitant]
     Active Substance: CALCIUM CARBONATE

REACTIONS (4)
  - End stage renal disease [Not Recovered/Not Resolved]
  - Acute kidney injury [Unknown]
  - Chronic kidney disease [Not Recovered/Not Resolved]
  - Renal failure [Unknown]

NARRATIVE: CASE EVENT DATE: 2008
